FAERS Safety Report 10221115 (Version 1)
Quarter: 2014Q2

REPORT INFORMATION
  Report Type: Spontaneous
  Country: US (occurrence: None)
  Receive Date: 20140604
  Receipt Date: 20140604
  Transmission Date: 20141212
  Serious: Yes (Other)
  Sender: FDA-Public Use
  Company Number: 201405120

PATIENT
  Sex: Male

DRUGS (1)
  1. TESTIM (TESTOSTERONE) [Suspect]
     Indication: BLOOD TESTOSTERONE DECREASED
     Dates: start: 201105, end: 201402

REACTIONS (11)
  - Cerebrovascular accident [None]
  - Myocardial infarction [None]
  - Pulmonary embolism [None]
  - Cardiovascular disorder [None]
  - Thrombosis [None]
  - Multiple injuries [None]
  - Pain [None]
  - Anxiety [None]
  - Anhedonia [None]
  - Unevaluable event [None]
  - Fear of disease [None]
